FAERS Safety Report 4537575-8 (Version None)
Quarter: 2004Q4

REPORT INFORMATION
  Report Type: 
  Country: None (occurrence: None)
  Receive Date: 20041221
  Receipt Date: 20040922
  Transmission Date: 20050328
  Serious: No
  Sender: FDA-Public Use
  Company Number: A-US2004-07488

PATIENT
  Sex: Male

DRUGS (1)
  1. TRACLEER [Suspect]
     Indication: PULMONARY HYPERTENSION
     Dosage: 125 MG , BID, ORAL
     Route: 048

REACTIONS (2)
  - EOSINOPHIL COUNT INCREASED [None]
  - LIVER FUNCTION TEST ABNORMAL [None]
